FAERS Safety Report 4739219-9 (Version None)
Quarter: 2005Q3

REPORT INFORMATION
  Report Type: 
  Country: None (occurrence: None)
  Receive Date: 20050810
  Receipt Date: 20050526
  Transmission Date: 20060218
  Serious: No
  Sender: FDA-Public Use
  Company Number: US-GLAXOSMITHKLINE-A0560256A

PATIENT

DRUGS (1)
  1. PAXIL CR [Suspect]
     Route: 048

REACTIONS (1)
  - NEUROLOGICAL SYMPTOM [None]
